FAERS Safety Report 5712152-1 (Version None)
Quarter: 2008Q2

REPORT INFORMATION
  Report Type: 
  Country: None (occurrence: None)
  Receive Date: 20080421
  Receipt Date: 20080421
  Transmission Date: 20081010
  Serious: Yes (Other)
  Sender: FDA-Public Use
  Company Number: None

PATIENT
  Age: 62 Year
  Sex: Female
  Weight: 109.7705 kg

DRUGS (1)
  1. CHANTIX [Suspect]
     Indication: SMOKING CESSATION THERAPY
     Dosage: 2 X DAY ORAL
     Route: 048
     Dates: start: 20071026, end: 20080315

REACTIONS (7)
  - CHILLS [None]
  - DRUG INTERACTION [None]
  - FEELING HOT [None]
  - LIVER FUNCTION TEST ABNORMAL [None]
  - NAUSEA [None]
  - SUICIDAL IDEATION [None]
  - WITHDRAWAL SYNDROME [None]
